FAERS Safety Report 5751729-4 (Version None)
Quarter: 2008Q2

REPORT INFORMATION
  Report Type: 
  Country: None (occurrence: None)
  Receive Date: 20080529
  Receipt Date: 20080522
  Transmission Date: 20081010
  Serious: Yes (Other)
  Sender: FDA-Public Use
  Company Number: GB-RANBAXY-2008RR-15357

PATIENT

DRUGS (1)
  1. SIMVASTATIN 10MG TABLETS [Suspect]

REACTIONS (1)
  - SENSATION OF FOREIGN BODY [None]
